FAERS Safety Report 5525598-1 (Version None)
Quarter: 2007Q4

REPORT INFORMATION
  Report Type: 
  Country: None (occurrence: None)
  Receive Date: 20071120
  Receipt Date: 20071120
  Transmission Date: 20080405
  Serious: No
  Sender: FDA-Public Use
  Company Number: None

PATIENT
  Age: 35 Year
  Sex: Female
  Weight: 365 kg

DRUGS (2)
  1. CYMBALTA [Suspect]
     Indication: ANXIETY
     Dosage: I CAPSURE 65 MG ONCE A DAY PO
     Route: 048
     Dates: start: 20070615, end: 20071116
  2. CYMBALTA [Suspect]
     Indication: STRESS
     Dosage: I CAPSURE 65 MG ONCE A DAY PO
     Route: 048
     Dates: start: 20070615, end: 20071116

REACTIONS (1)
  - DRUG WITHDRAWAL SYNDROME [None]
